FAERS Safety Report 9765011 (Version 3)
Quarter: 2014Q1

REPORT INFORMATION
  Report Type: Spontaneous
  Country: US (occurrence: US)
  Receive Date: 20131217
  Receipt Date: 20140226
  Transmission Date: 20141002
  Serious: No
  Sender: FDA-Public Use
  Company Number: US-009507513-1312USA005552

PATIENT
  Age: 73 Year
  Sex: Male

DRUGS (2)
  1. COSOPT PF [Suspect]
     Indication: GLAUCOMA
     Dosage: ONE DROP IN EACH EYE TWICE DAILY
     Route: 047
     Dates: start: 201311
  2. COSOPT PF [Suspect]
     Dosage: ONE DROP IN EACH EYE TWICE DAILY
     Route: 047
     Dates: start: 201402

REACTIONS (3)
  - Eye pain [Unknown]
  - Eye irritation [Unknown]
  - Product quality issue [Unknown]
